FAERS Safety Report 10490541 (Version 2)
Quarter: 2014Q4

REPORT INFORMATION
  Report Type: Report from Study
  Country: US (occurrence: US)
  Receive Date: 20141002
  Receipt Date: 20141007
  Transmission Date: 20150528
  Serious: Yes (Hospitalization)
  Sender: FDA-Public Use
  Company Number: US-009507513-1409USA014299

PATIENT
  Age: 55 Year
  Sex: Male
  Weight: 73.5 kg

DRUGS (14)
  1. VORINOSTAT [Suspect]
     Active Substance: VORINOSTAT
     Dosage: 200 MG, CYCLICAL (DAYS 1-5)
     Route: 048
     Dates: start: 20140815, end: 20140819
  2. RITUXIMAB [Suspect]
     Active Substance: RITUXIMAB
     Indication: LYMPHOMA AIDS RELATED
     Dosage: 375 MG/M2, ONCE (DAY 1)
     Route: 042
     Dates: start: 20140613, end: 20140613
  3. ETOPOSIDE. [Suspect]
     Active Substance: ETOPOSIDE
     Indication: LYMPHOMA AIDS RELATED
     Dosage: 50 MG/M2/DAY CONTINUOUS IV INFUSION OVER 96 HOUR ON DAYS 1-4
     Route: 042
     Dates: start: 20140613, end: 20140616
  4. ETOPOSIDE. [Suspect]
     Active Substance: ETOPOSIDE
     Dosage: 50 MG/M2/DAY CONTINUOUS IV INFUSION OVER 96 HOUR ON DAYS 1-4
     Route: 042
     Dates: start: 20140815, end: 20140818
  5. PREDNISONE. [Suspect]
     Active Substance: PREDNISONE
     Indication: LYMPHOMA AIDS RELATED
     Dosage: 60 MG/M2/DAY, PO ON DAYS 1-5
     Route: 048
     Dates: start: 20140613, end: 20140617
  6. CYCLOPHOSPHAMIDE. [Suspect]
     Active Substance: CYCLOPHOSPHAMIDE
     Dosage: 375 MG/M2- 750MG/M2 IV OVER 1 HOUR ON DAY 5
     Route: 042
     Dates: start: 20140819, end: 20140819
  7. VINCRISTINE SULFATE. [Suspect]
     Active Substance: VINCRISTINE SULFATE
     Dosage: 0.4 MG/M2/DAY, CONTINUOUS IV INFUSION OVER 96 HOUR ON DAYS 1-4
     Route: 042
     Dates: start: 20140815, end: 20140818
  8. VORINOSTAT [Suspect]
     Active Substance: VORINOSTAT
     Indication: LYMPHOMA AIDS RELATED
     Dosage: 200 MG, CYCLICAL (DAYS 1-5)
     Route: 048
     Dates: start: 20140613, end: 20140617
  9. RITUXIMAB [Suspect]
     Active Substance: RITUXIMAB
     Dosage: 375 MG/M2, ONCE (DAY 1)
     Route: 042
     Dates: start: 20140815, end: 20140815
  10. DOXORUBICIN [Suspect]
     Active Substance: DOXORUBICIN
     Indication: LYMPHOMA AIDS RELATED
     Dosage: 10 MG/M2/DAY CONTINUOUS IV INFUSION OVER 96 HOUR ON DAYS 1-4
     Route: 042
     Dates: start: 20140613, end: 20140616
  11. VINCRISTINE SULFATE. [Suspect]
     Active Substance: VINCRISTINE SULFATE
     Indication: LYMPHOMA AIDS RELATED
     Dosage: 0.4 MG/M2/DAY, CONTINUOUS IV INFUSION OVER 96 HOUR ON DAYS 1-4
     Route: 042
     Dates: start: 20140613, end: 20140616
  12. PREDNISONE. [Suspect]
     Active Substance: PREDNISONE
     Dosage: 60 MG/M2/DAY, PO ON DAYS 1-5
     Route: 048
     Dates: start: 20140815, end: 20140819
  13. DOXORUBICIN [Suspect]
     Active Substance: DOXORUBICIN
     Dosage: 10 MG/M2/DAY CONTINUOUS IV INFUSION OVER 96 HOUR ON DAYS 1-4
     Route: 042
     Dates: start: 20140815, end: 20140818
  14. CYCLOPHOSPHAMIDE. [Suspect]
     Active Substance: CYCLOPHOSPHAMIDE
     Indication: LYMPHOMA AIDS RELATED
     Dosage: 375 MG/M2- 750MG/M2 IV OVER 1 HOUR ON DAY 5
     Route: 042
     Dates: start: 20140617, end: 20140617

REACTIONS (1)
  - Lung infection [Recovering/Resolving]

NARRATIVE: CASE EVENT DATE: 20140908
